FAERS Safety Report 9400466 (Version 1)
Quarter: 2013Q3

REPORT INFORMATION
  Report Type: Spontaneous
  Country: GB (occurrence: GB)
  Receive Date: 20130715
  Receipt Date: 20130715
  Transmission Date: 20140515
  Serious: Yes (Other)
  Sender: FDA-Public Use
  Company Number: GB-ABBOTT-13P-167-1117500-00

PATIENT
  Age: 63 Year
  Sex: Female

DRUGS (4)
  1. HUMIRA [Suspect]
     Indication: RHEUMATOID ARTHRITIS
     Dates: start: 200306, end: 200401
  2. MABTHERA [Suspect]
     Indication: RHEUMATOID ARTHRITIS
     Dates: start: 20120417, end: 20120501
  3. ROACTEMRA [Suspect]
     Indication: RHEUMATOID ARTHRITIS
     Dates: start: 20121205, end: 20121205
  4. ENBREL [Suspect]
     Indication: RHEUMATOID ARTHRITIS
     Dates: start: 200402, end: 201203

REACTIONS (2)
  - Metastases to lung [Unknown]
  - Pancreatic carcinoma metastatic [Not Recovered/Not Resolved]
